FAERS Safety Report 19993597 (Version 2)
Quarter: 2021Q4

REPORT INFORMATION
  Report Type: Report from Study
  Country: US (occurrence: None)
  Receive Date: 20211026
  Receipt Date: 20211208
  Transmission Date: 20220303
  Serious: Yes (Hospitalization)
  Sender: FDA-Public Use
  Company Number: US-ROCHE-2940183

PATIENT
  Age: 64 Year
  Sex: Male
  Weight: 68 kg

DRUGS (5)
  1. VENETOCLAX [Suspect]
     Active Substance: VENETOCLAX
     Indication: Chronic lymphocytic leukaemia
     Dosage: LAST DOSE ADMINISTERED ON: 14/SEP/2021?20 MG PO QD DAYS 1-7 CYCLE 3?50 MG PO QD DAYS 8-14, CYCLE 3?1
     Route: 048
     Dates: start: 20201007
  2. OBINUTUZUMAB [Suspect]
     Active Substance: OBINUTUZUMAB
     Indication: Chronic lymphocytic leukaemia
     Dosage: LAST DOS ADMINISTERED ON: 06/JAN/2021?100 MG IV ON DAY 1, CYCLE 1?900 MG IV ON DAY 2, CYCLE 1?1000 M
     Route: 042
     Dates: start: 20200810
  3. IBRUTINIB [Suspect]
     Active Substance: IBRUTINIB
     Indication: Chronic lymphocytic leukaemia
     Dosage: LAST DOSE ADMINISTERED ON: 28/SEP/2021?420 MG PO QD ON DAYS 1-28, CYCLES 1-19
     Route: 048
     Dates: start: 20210818
  4. TYLENOL [Concomitant]
     Active Substance: ACETAMINOPHEN
  5. GABAPENTIN [Concomitant]
     Active Substance: GABAPENTIN

REACTIONS (1)
  - Papilloedema [Recovering/Resolving]

NARRATIVE: CASE EVENT DATE: 20210928
